FAERS Safety Report 7573893-7 (Version None)
Quarter: 2011Q2

REPORT INFORMATION
  Report Type: 
  Country: None (occurrence: None)
  Receive Date: 20110627
  Receipt Date: 20110616
  Transmission Date: 20111010
  Serious: Yes (Other)
  Sender: FDA-Public Use
  Company Number: B0693999A

PATIENT
  Sex: Male

DRUGS (5)
  1. EFAVIRENZ [Suspect]
     Indication: HIV INFECTION
  2. ACTOS [Concomitant]
     Indication: DIABETES MELLITUS
     Route: 048
     Dates: end: 20100312
  3. EPIVIR [Suspect]
     Indication: HIV INFECTION
     Dosage: 2IUAX PER DAY
     Route: 048
     Dates: start: 20060501
  4. KALETRA [Concomitant]
     Indication: HIV INFECTION
     Dosage: 4IUAX PER DAY
     Route: 048
  5. ZERIT [Suspect]
     Indication: HIV INFECTION

REACTIONS (3)
  - HYPERTRIGLYCERIDAEMIA [None]
  - DIABETIC RETINOPATHY [None]
  - DIABETES MELLITUS [None]
